FAERS Safety Report 8553441-5 (Version None)
Quarter: 2012Q3

REPORT INFORMATION
  Report Type: 
  Country: None (occurrence: None)
  Receive Date: 20120731
  Receipt Date: 20120720
  Transmission Date: 20120928
  Serious: Yes (Death, Hospitalization)
  Sender: FDA-Public Use
  Company Number: KR-CELGENEUS-286-50794-12071190

PATIENT
  Sex: Female
  Weight: 62 kg

DRUGS (8)
  1. VIDAZA [Suspect]
     Route: 065
     Dates: start: 20120626, end: 20120626
  2. MECOOL [Concomitant]
     Route: 041
     Dates: start: 20120620, end: 20120620
  3. VIDAZA [Suspect]
     Route: 065
     Dates: start: 20120620
  4. GASMOTIN [Concomitant]
     Indication: DYSPEPSIA
     Dosage: 10 MILLIGRAM
     Route: 048
     Dates: start: 20120622, end: 20120626
  5. CURAN [Concomitant]
     Route: 041
     Dates: start: 20120620, end: 20120621
  6. BESTIDINE [Concomitant]
     Dosage: 40 MILLIGRAM
     Route: 048
     Dates: start: 20120622, end: 20120626
  7. PHAZYME [Concomitant]
     Indication: DYSPEPSIA
     Route: 048
     Dates: start: 20120620, end: 20120626
  8. MGO [Concomitant]
     Indication: CONSTIPATION
     Dosage: 750 MILLIGRAM
     Route: 048
     Dates: start: 20120622, end: 20120702

REACTIONS (2)
  - PNEUMONIA [None]
  - SEPTIC SHOCK [None]
